FAERS Safety Report 5191332-0 (Version None)
Quarter: 2006Q4

REPORT INFORMATION
  Report Type: 
  Country: None (occurrence: None)
  Receive Date: 20061219
  Receipt Date: 20061219
  Transmission Date: 20070319
  Serious: Yes (Other)
  Sender: FDA-Public Use
  Company Number: None

PATIENT
  Age: 66 Year
  Sex: Female
  Weight: 81.6475 kg

DRUGS (1)
  1. CIPRO [Suspect]
     Indication: KIDNEY INFECTION
     Dosage: 500MG  BID   PO
     Route: 048
     Dates: start: 20060223, end: 20060228

REACTIONS (5)
  - ABASIA [None]
  - INFLUENZA [None]
  - MOBILITY DECREASED [None]
  - PAIN [None]
  - TENDONITIS [None]
